FAERS Safety Report 4750063-9 (Version None)
Quarter: 2005Q3

REPORT INFORMATION
  Report Type: 
  Country: None (occurrence: None)
  Receive Date: 20050822
  Receipt Date: 20050809
  Transmission Date: 20060218
  Serious: Yes (Other)
  Sender: FDA-Public Use
  Company Number: 2005062541

PATIENT
  Age: 75 Year
  Sex: Male

DRUGS (1)
  1. ZOXAN LP (DOXAZOSIN) [Suspect]
     Indication: PROSTATIC DISORDER
     Dosage: 1 DF (QD),

REACTIONS (3)
  - MACULOPATHY [None]
  - SCOTOMA [None]
  - VISION BLURRED [None]
